FAERS Safety Report 14775469 (Version 1)
Quarter: 2018Q2

REPORT INFORMATION
  Report Type: Spontaneous
  Country: US (occurrence: US)
  Receive Date: 20180412
  Receipt Date: 20180412
  Transmission Date: 20180711
  Serious: Yes (Other)
  Sender: FDA-Public Use
  Company Number: None

PATIENT
  Age: 80 Year
  Sex: Female

DRUGS (1)
  1. IBRANCE [Suspect]
     Active Substance: PALBOCICLIB
     Indication: BREAST CANCER FEMALE
     Dosage: 125MG DAILY FOR 21DAYS OF A 28 DAY CYCLE PO                         ?
     Route: 048
     Dates: start: 20171020

REACTIONS (2)
  - Fatigue [None]
  - Tinnitus [None]

NARRATIVE: CASE EVENT DATE: 20180408
